FAERS Safety Report 20727882 (Version 5)
Quarter: 2022Q4

REPORT INFORMATION
  Report Type: Report from Study
  Country: KR (occurrence: KR)
  Receive Date: 20220419
  Receipt Date: 20221012
  Transmission Date: 20230113
  Serious: Yes (Hospitalization, Other)
  Sender: FDA-Public Use
  Company Number: KR-BRISTOL-MYERS SQUIBB COMPANY-2022-018333

PATIENT
  Age: 63 Year
  Sex: Female

DRUGS (4)
  1. POMALYST [Suspect]
     Active Substance: POMALIDOMIDE
     Indication: Plasma cell myeloma
     Route: 065
     Dates: start: 20220119, end: 20220301
  2. POMALYST [Suspect]
     Active Substance: POMALIDOMIDE
     Dosage: 4MG/DAY
     Route: 065
     Dates: start: 20220311, end: 20220331
  3. POMALYST [Suspect]
     Active Substance: POMALIDOMIDE
     Route: 065
     Dates: start: 20220413
  4. LENADEX [Suspect]
     Active Substance: DEXAMETHASONE ACETATE
     Indication: Product used for unknown indication
     Dosage: DAILY DOSE- 40MG/DAY?DOSE PER CYCLE- 152.5MG/CYCLE (3 CYCLES)?CYCLICAL
     Route: 065

REACTIONS (1)
  - Colitis [Recovered/Resolved]

NARRATIVE: CASE EVENT DATE: 20220307
